FAERS Safety Report 4530162-7 (Version None)
Quarter: 2004Q4

REPORT INFORMATION
  Report Type: 
  Country: None (occurrence: None)
  Receive Date: 20041215
  Receipt Date: 20041202
  Transmission Date: 20050328
  Serious: Yes (Other)
  Sender: FDA-Public Use
  Company Number: GBWYE256003DEC04

PATIENT
  Sex: Male

DRUGS (1)
  1. EFFEXOR [Suspect]
     Indication: MAJOR DEPRESSION
     Dosage: 75MG DAYS 1-3; ORAL
     Route: 048
     Dates: start: 20030601

REACTIONS (9)
  - DISTURBANCE IN ATTENTION [None]
  - FEELING ABNORMAL [None]
  - HEARING IMPAIRED [None]
  - INSOMNIA [None]
  - SENSATION OF HEAVINESS [None]
  - STEREOTYPIC MOVEMENT DISORDER [None]
  - SUICIDAL IDEATION [None]
  - TEARFULNESS [None]
  - THINKING ABNORMAL [None]
